FAERS Safety Report 4366707-X (Version None)
Quarter: 2004Q2

REPORT INFORMATION
  Report Type: 
  Country: None (occurrence: None)
  Receive Date: 20040527
  Receipt Date: 20040331
  Transmission Date: 20050107
  Serious: No
  Sender: FDA-Public Use
  Company Number: DE-MERCK-0404DEU00002

PATIENT
  Age: 56 Year
  Sex: Female

DRUGS (3)
  1. ZETIA [Suspect]
     Indication: HYPERLIPIDAEMIA
     Route: 048
     Dates: start: 20040218, end: 20040316
  2. GABAPENTIN [Concomitant]
     Indication: EPILEPSY
     Route: 048
  3. OXCARBAZEPINE [Concomitant]
     Indication: EPILEPSY
     Route: 065

REACTIONS (1)
  - BLOOD CREATINE PHOSPHOKINASE INCREASED [None]
